FAERS Safety Report 20102584 (Version 1)
Quarter: 2021Q4

REPORT INFORMATION
  Report Type: Spontaneous
  Country: US (occurrence: None)
  Receive Date: 20211122
  Receipt Date: 20211122
  Transmission Date: 20220303
  Serious: No
  Sender: FDA-Public Use
  Company Number: None

PATIENT

DRUGS (2)
  1. DESOGEN [Suspect]
     Active Substance: DESOGESTREL\ETHINYL ESTRADIOL
     Dosage: OTHER STRENGTH : 0.15 MG+30 MCG ;?
     Route: 048
  2. DESOGESTREL AND ETHINYL ESTRADIOL [Suspect]
     Active Substance: DESOGESTREL\ETHINYL ESTRADIOL
     Dosage: OTHER STRENGTH : 0.15 MG-20 MCG ;?
     Route: 048

REACTIONS (2)
  - Product dispensing error [None]
  - Incorrect dose administered [None]
